FAERS Safety Report 4884623-1 (Version None)
Quarter: 2006Q1

REPORT INFORMATION
  Report Type: 
  Country: None (occurrence: None)
  Receive Date: 20060117
  Receipt Date: 20060103
  Transmission Date: 20060701
  Serious: Yes (Hospitalization, Other)
  Sender: FDA-Public Use
  Company Number: USA-2003-0008901

PATIENT
  Age: 45 Year
  Sex: Male
  Weight: 93 kg

DRUGS (12)
  1. OXYCONTIN [Suspect]
     Indication: PAIN
     Dosage: MG, SEE TEXT, ORAL
     Route: 048
     Dates: start: 19990701
  2. PERCOCET [Suspect]
     Dosage: 5 MG, HS, ORAL
     Route: 048
  3. LORTAB [Suspect]
  4. MARIJUANA (CANNABIS) [Suspect]
  5. RESTORIL [Concomitant]
  6. TRAZODONE (TRAZODONE) [Concomitant]
  7. PHENOBARBITAL TAB [Concomitant]
  8. GLYBURIDE [Concomitant]
  9. ATIVAN [Concomitant]
  10. EFFEXOR [Concomitant]
  11. VALIUM [Concomitant]
  12. AMBIEN [Concomitant]

REACTIONS (29)
  - ANGER [None]
  - BACK PAIN [None]
  - BONE PAIN [None]
  - BRONCHITIS ACUTE [None]
  - BURNING SENSATION [None]
  - CARPAL TUNNEL SYNDROME [None]
  - CONDITION AGGRAVATED [None]
  - COUGH [None]
  - DEPRESSION SUICIDAL [None]
  - DEVICE MIGRATION [None]
  - DIABETIC NEUROPATHY [None]
  - DRUG DEPENDENCE [None]
  - DRUG WITHDRAWAL SYNDROME [None]
  - HYPOAESTHESIA [None]
  - INADEQUATE ANALGESIA [None]
  - LETHARGY [None]
  - MEDICAL DEVICE PAIN [None]
  - NASOPHARYNGITIS [None]
  - NERVOUSNESS [None]
  - OSTEOARTHRITIS [None]
  - PAIN [None]
  - PARAESTHESIA [None]
  - PHARMACEUTICAL PRODUCT COMPLAINT [None]
  - POLYSUBSTANCE ABUSE [None]
  - PSEUDARTHROSIS [None]
  - RADICULAR PAIN [None]
  - SELF-INJURIOUS IDEATION [None]
  - THERAPY NON-RESPONDER [None]
  - TREMOR [None]
